FAERS Safety Report 17615285 (Version 1)
Quarter: 2020Q2

REPORT INFORMATION
  Report Type: Report from Study
  Country: US (occurrence: US)
  Receive Date: 20200402
  Receipt Date: 20200402
  Transmission Date: 20200713
  Serious: Yes (Hospitalization)
  Sender: FDA-Public Use
  Company Number: US-ROCHE-2572710

PATIENT
  Sex: Male

DRUGS (2)
  1. VENCLEXTA [Suspect]
     Active Substance: VENETOCLAX
     Indication: MYELODYSPLASTIC SYNDROME
     Route: 048
  2. VENCLEXTA [Suspect]
     Active Substance: VENETOCLAX
     Indication: PYREXIA

REACTIONS (3)
  - Intentional product use issue [Unknown]
  - Ulcer haemorrhage [Unknown]
  - Off label use [Unknown]
